FAERS Safety Report 6619010-9 (Version None)
Quarter: 2010Q1

REPORT INFORMATION
  Report Type: 
  Country: None (occurrence: None)
  Receive Date: 20100308
  Receipt Date: 20100204
  Transmission Date: 20100710
  Serious: No
  Sender: FDA-Public Use
  Company Number: US-BAYER-201011655BCC

PATIENT
  Age: 90 Year
  Sex: Female
  Weight: 73 kg

DRUGS (7)
  1. ALEVE [Suspect]
     Indication: ARTHRALGIA
     Dosage: TOTAL DAILY DOSE: 440 MG  UNIT DOSE: 220 MG
     Route: 048
     Dates: start: 20100202, end: 20100202
  2. ALEVE [Suspect]
     Dosage: TOTAL DAILY DOSE: 220 MG  UNIT DOSE: 220 MG
     Route: 048
     Dates: start: 20100203, end: 20100203
  3. HIGH BLOOD PRESSURE MEDICATION [Concomitant]
     Indication: HYPERTENSION
     Route: 065
  4. METFORMIN HYDROCHLORIDE [Concomitant]
     Route: 065
  5. XALATAN [Concomitant]
     Route: 065
  6. GENERIC ALPHAGAN [Concomitant]
     Route: 065
  7. UNSPECIFIED EYE DROPS [Concomitant]
     Route: 047

REACTIONS (1)
  - DIARRHOEA [None]
